FAERS Safety Report 25947428 (Version 2)
Quarter: 2025Q4

REPORT INFORMATION
  Report Type: Report from Study
  Country: US (occurrence: US)
  Receive Date: 20251022
  Receipt Date: 20251028
  Transmission Date: 20260118
  Serious: No
  Sender: MALLINCKRODT
  Company Number: US-MALLINCKRODT-MNK202506088

PATIENT
  Age: 64 Year
  Sex: Female

DRUGS (3)
  1. CORTICOTROPIN [Suspect]
     Active Substance: CORTICOTROPIN
     Indication: Psoriatic arthropathy
     Dosage: 80 UNITS
     Dates: start: 20250203, end: 2025
  2. ADVIL [Concomitant]
     Active Substance: IBUPROFEN
     Dosage: UNKNOWN
  3. TYLENOL [Concomitant]
     Active Substance: ACETAMINOPHEN
     Dosage: UNKNOWN

REACTIONS (9)
  - Anger [Unknown]
  - Gait disturbance [Unknown]
  - Food craving [Unknown]
  - Psoriasis [Not Recovered/Not Resolved]
  - Depression [Unknown]
  - Irritability [Unknown]
  - Frustration tolerance decreased [Unknown]
  - Skin atrophy [Unknown]
  - Injection site bruising [Recovering/Resolving]

NARRATIVE: CASE EVENT DATE: 20250101
